FAERS Safety Report 8045416-X (Version None)
Quarter: 2012Q1

REPORT INFORMATION
  Report Type: 
  Country: None (occurrence: None)
  Receive Date: 20120113
  Receipt Date: 20120111
  Transmission Date: 20120608
  Serious: Yes (Death)
  Sender: FDA-Public Use
  Company Number: IL-B.I. PHARMACEUTICALS,INC./RIDGEFIELD-2011-AP-00713RI

PATIENT
  Age: 66 Year
  Sex: Female

DRUGS (6)
  1. DIGOXIN [Concomitant]
     Route: 048
  2. FUROSEMIDE [Concomitant]
     Route: 048
  3. CARDILOC [Concomitant]
     Route: 048
  4. ALDOSPIRON [Concomitant]
     Route: 048
  5. LIPITOR [Concomitant]
     Route: 048
  6. PRADAXA [Suspect]
     Indication: CARDIAC VALVE DISEASE
     Dosage: 300 MG
     Dates: start: 20111101, end: 20111208

REACTIONS (4)
  - DEHYDRATION [None]
  - HAEMORRHAGE [None]
  - MULTI-ORGAN FAILURE [None]
  - DIARRHOEA [None]
